FAERS Safety Report 5017992-2 (Version None)
Quarter: 2006Q2

REPORT INFORMATION
  Report Type: 
  Country: None (occurrence: None)
  Receive Date: 20060530
  Receipt Date: 20060317
  Transmission Date: 20061013
  Serious: Yes (Other)
  Sender: FDA-Public Use
  Company Number: 2005046207

PATIENT
  Sex: 0
  Weight: 63 kg

DRUGS (2)
  1. LYRICA [Suspect]
     Indication: ILL-DEFINED DISORDER
     Dosage: 300 MG (1 IN 1 D), ORAL
     Route: 048
     Dates: start: 20041015, end: 20050301
  2. TOPIRAMATE [Concomitant]

REACTIONS (6)
  - FLATULENCE [None]
  - JOINT SWELLING [None]
  - PAIN [None]
  - SWELLING FACE [None]
  - TENSION [None]
  - WEIGHT INCREASED [None]
